FAERS Safety Report 4797401-9 (Version None)
Quarter: 2005Q4

REPORT INFORMATION
  Report Type: 
  Country: None (occurrence: None)
  Receive Date: 20051011
  Receipt Date: 20051011
  Transmission Date: 20060501
  Serious: Yes (Life-Threatening, Hospitalization)
  Sender: FDA-Public Use
  Company Number: None

PATIENT
  Age: 55 Year
  Sex: Female
  Weight: 76.6579 kg

DRUGS (17)
  1. DAUNORUBICIN HCL [Suspect]
     Indication: ACUTE LYMPHOCYTIC LEUKAEMIA
     Dosage: 108MG IV WEEKLY
     Route: 042
     Dates: start: 20050913
  2. DAUNORUBICIN HCL [Suspect]
     Indication: ACUTE LYMPHOCYTIC LEUKAEMIA
     Dosage: 108MG IV WEEKLY
     Route: 042
     Dates: start: 20050925
  3. DAUNORUBICIN HCL [Suspect]
     Indication: ACUTE LYMPHOCYTIC LEUKAEMIA
     Dosage: 108MG IV WEEKLY
     Route: 042
     Dates: start: 20050927
  4. L-ASPARAGINASE 10,000IU [Suspect]
     Indication: ACUTE LYMPHOCYTIC LEUKAEMIA
     Dosage: 10,000IU IV
     Route: 042
     Dates: start: 20050929
  5. L-ASPARAGINASE 10,000IU [Suspect]
     Indication: ACUTE LYMPHOCYTIC LEUKAEMIA
     Dosage: 10,000IU IV
     Route: 042
     Dates: start: 20050930
  6. ACYCLOVIR [Concomitant]
  7. AMPHOGEL [Concomitant]
  8. MEROPENEM [Concomitant]
  9. SOLU-MEDROL [Concomitant]
  10. DIFLUCAN [Concomitant]
  11. VANCOMYCIN [Concomitant]
  12. DUCOLAX [Concomitant]
  13. TYLENOL (CAPLET) [Concomitant]
  14. ZOLOFT [Concomitant]
  15. AVANDIA [Concomitant]
  16. PROTONIX [Concomitant]
  17. LEUKINE [Concomitant]

REACTIONS (11)
  - ALPHA HAEMOLYTIC STREPTOCOCCAL INFECTION [None]
  - ATRIAL FIBRILLATION [None]
  - DYSPNOEA [None]
  - ESCHERICHIA BACTERAEMIA [None]
  - HYPOXIA [None]
  - METABOLIC ACIDOSIS [None]
  - RALES [None]
  - RENAL FAILURE ACUTE [None]
  - RESPIRATORY FAILURE [None]
  - SEPSIS [None]
  - TACHYCARDIA [None]
